FAERS Safety Report 4284838-X (Version None)
Quarter: 2004Q1

REPORT INFORMATION
  Report Type: 
  Country: None (occurrence: None)
  Receive Date: 20040204
  Receipt Date: 20040123
  Transmission Date: 20041129
  Serious: Yes (Life-Threatening)
  Sender: FDA-Public Use
  Company Number: JP-BRISTOL-MYERS SQUIBB COMPANY-12485157

PATIENT
  Age: 31 Year
  Sex: Female

DRUGS (2)
  1. MAXIPIME [Suspect]
     Indication: PYREXIA
     Route: 042
     Dates: start: 20031130, end: 20031202
  2. DICLOFENAC SODIUM [Suspect]
     Indication: PYREXIA
     Dates: start: 20031130, end: 20031202

REACTIONS (1)
  - STEVENS-JOHNSON SYNDROME [None]
